FAERS Safety Report 9700252 (Version 1)
Quarter: 2013Q4

REPORT INFORMATION
  Report Type: Spontaneous
  Country: GB (occurrence: None)
  Receive Date: 20131119
  Receipt Date: 20131119
  Transmission Date: 20140711
  Serious: Yes (Other)
  Sender: FDA-Public Use
  Company Number: AUR-APL-2013-09424

PATIENT
  Age: 35 Year
  Sex: Female
  Weight: 60 kg

DRUGS (5)
  1. SERTRALINE [Suspect]
     Indication: DEPRESSION
     Route: 048
     Dates: start: 20130809, end: 20131026
  2. CORTISONE [Suspect]
     Indication: PRODUCT USED FOR UNKNOWN INDICATION
  3. PREGABALIN (PREGABALIN) [Concomitant]
  4. SUMBICORT (BUDESONIDE W/FORMOTEROL FUMARATE) [Concomitant]
  5. TRANEXAMIC [Concomitant]

REACTIONS (3)
  - Anxiety [None]
  - Weight decreased [None]
  - Jaw disorder [None]
